FAERS Safety Report 11303255 (Version 1)
Quarter: 2015Q3

REPORT INFORMATION
  Report Type: Spontaneous
  Country: US (occurrence: US)
  Receive Date: 20150723
  Receipt Date: 20150723
  Transmission Date: 20151125
  Serious: No
  Sender: FDA-Public Use
  Company Number: US-JNJFOC-20140915924

PATIENT
  Age: 43 Year
  Sex: Female
  Weight: 63.5 kg

DRUGS (3)
  1. ZYRTEC [Suspect]
     Active Substance: CETIRIZINE HYDROCHLORIDE
     Indication: ALLERGY TO ANIMAL
     Dosage: FOR 3 YEARS, 2 TABLETS
     Route: 048
  2. ZYRTEC [Suspect]
     Active Substance: CETIRIZINE HYDROCHLORIDE
     Indication: SEASONAL ALLERGY
     Dosage: FOR 3 YEARS, 2 TABLETS
     Route: 048
  3. ZYRTEC [Suspect]
     Active Substance: CETIRIZINE HYDROCHLORIDE
     Indication: LACRIMATION INCREASED
     Dosage: FOR 3 YEARS, 2 TABLETS
     Route: 048

REACTIONS (4)
  - Product packaging quantity issue [Unknown]
  - Product use issue [Unknown]
  - Extra dose administered [Unknown]
  - Therapeutic response unexpected [Unknown]
